FAERS Safety Report 6639612-3 (Version None)
Quarter: 2010Q1

REPORT INFORMATION
  Report Type: 
  Country: None (occurrence: None)
  Receive Date: 20100315
  Receipt Date: 20100301
  Transmission Date: 20100710
  Serious: Yes (Death, Hospitalization)
  Sender: FDA-Public Use
  Company Number: 2009AC000077

PATIENT
  Age: 77 Year
  Sex: Female

DRUGS (33)
  1. DIGOXIN [Suspect]
     Dosage: 625 MCG;QOD;PO
     Route: 048
     Dates: start: 20020123
  2. DIGOXIN [Suspect]
     Dosage: 625 MCG;QOD;PO
     Route: 048
     Dates: start: 20070714
  3. DIGOXIN [Suspect]
     Dosage: .125 MG;TIW;PO
     Route: 048
     Dates: start: 20060501
  4. ALDACTONE [Concomitant]
  5. CORDARONE [Concomitant]
  6. POTASSIUM CHLORIDE [Concomitant]
  7. PEPCID [Concomitant]
  8. LIPITOR [Concomitant]
  9. LASIX [Concomitant]
  10. ZOLIPREM [Concomitant]
  11. TRAMADOL HCL [Concomitant]
  12. COREG [Concomitant]
  13. METOCLOPRAMIDE [Concomitant]
  14. PREVACID [Concomitant]
  15. ZOFRAN [Concomitant]
  16. MEGESTROL [Concomitant]
  17. COUMADIN [Concomitant]
  18. PACERONE [Concomitant]
  19. . [Concomitant]
  20. GLYCOLAX [Concomitant]
  21. ALPRAZOLAM [Concomitant]
  22. NITROGLYCERIN [Concomitant]
  23. DILTIAZ  ER [Concomitant]
  24. PAXIL [Concomitant]
  25. MECLIZINE [Concomitant]
  26. DIOVAN [Concomitant]
  27. OXYCOD/APAP [Concomitant]
  28. PROMETHAZINE [Concomitant]
  29. PRIMIDONE [Concomitant]
  30. ALTACE [Concomitant]
  31. CARDIZEM [Concomitant]
  32. PRILOSEC [Concomitant]
  33. ASPIRIN [Concomitant]

REACTIONS (46)
  - ACUTE MYOCARDIAL INFARCTION [None]
  - ANGINA PECTORIS [None]
  - ANOXIA [None]
  - ATRIAL FIBRILLATION [None]
  - BEDRIDDEN [None]
  - BUNDLE BRANCH BLOCK LEFT [None]
  - CARDIAC FAILURE CONGESTIVE [None]
  - CARDIO-RESPIRATORY ARREST [None]
  - CARDIOGENIC SHOCK [None]
  - CARDIOMEGALY [None]
  - CARDIORENAL SYNDROME [None]
  - CONDITION AGGRAVATED [None]
  - CONFUSIONAL STATE [None]
  - CORONARY ARTERY DISEASE [None]
  - DIARRHOEA [None]
  - ECONOMIC PROBLEM [None]
  - HEPATIC CONGESTION [None]
  - HEPATIC ENZYME INCREASED [None]
  - HIATUS HERNIA [None]
  - HYPERLIPIDAEMIA [None]
  - HYPERTENSION [None]
  - HYPOKALAEMIA [None]
  - HYPOTENSION [None]
  - INTERNATIONAL NORMALISED RATIO INCREASED [None]
  - ISCHAEMIC CARDIOMYOPATHY [None]
  - JOINT INJURY [None]
  - LIMB INJURY [None]
  - MITRAL VALVE INCOMPETENCE [None]
  - MUSCLE SPASMS [None]
  - NECK INJURY [None]
  - PAIN [None]
  - PANCREATITIS ACUTE [None]
  - PARTNER STRESS [None]
  - PERIPHERAL VASCULAR DISORDER [None]
  - PHARYNGITIS [None]
  - PLEURAL EFFUSION [None]
  - PNEUMONIA VIRAL [None]
  - PULMONARY CONGESTION [None]
  - RENAL FAILURE [None]
  - ROAD TRAFFIC ACCIDENT [None]
  - SICK SINUS SYNDROME [None]
  - THERAPEUTIC AGENT TOXICITY [None]
  - UPPER RESPIRATORY TRACT INFECTION [None]
  - VENTRICULAR FIBRILLATION [None]
  - VERTIGO [None]
  - WHEELCHAIR USER [None]
